FAERS Safety Report 25930610 (Version 1)
Quarter: 2025Q4

REPORT INFORMATION
  Report Type: Spontaneous
  Country: US (occurrence: US)
  Receive Date: 20251016
  Receipt Date: 20251016
  Transmission Date: 20260118
  Serious: Yes (Hospitalization)
  Sender: MYLAN
  Company Number: US-MYLANLABS-2025M1087989

PATIENT
  Age: 89 Year
  Sex: Female
  Weight: 34.3 kg

DRUGS (2)
  1. ACETAMINOPHEN [Suspect]
     Active Substance: ACETAMINOPHEN
     Indication: Cystitis
     Dosage: 1000 MILLIGRAM, Q8H
  2. CEPHALEXIN [Concomitant]
     Active Substance: CEPHALEXIN
     Indication: Cystitis
     Dosage: UNK

REACTIONS (4)
  - Encephalopathy [Recovering/Resolving]
  - Drug-induced liver injury [Recovered/Resolved]
  - Acute hepatic failure [Recovering/Resolving]
  - Overdose [Recovering/Resolving]
